FAERS Safety Report 9687584 (Version 2)
Quarter: 2013Q4

REPORT INFORMATION
  Report Type: Spontaneous
  Country: US (occurrence: None)
  Receive Date: 20131112
  Receipt Date: 20131125
  Transmission Date: 20140711
  Serious: Yes (Other)
  Sender: FDA-Public Use
  Company Number: 2013P1020726

PATIENT
  Age: 39 Year
  Sex: Female

DRUGS (1)
  1. MYORISAN [Suspect]
     Route: 048
     Dates: start: 20130926, end: 201310

REACTIONS (1)
  - No adverse event [None]
